FAERS Safety Report 8170743-5 (Version None)
Quarter: 2012Q1

REPORT INFORMATION
  Report Type: 
  Country: None (occurrence: None)
  Receive Date: 20120104
  Receipt Date: 20111116
  Transmission Date: 20120608
  Serious: No
  Sender: FDA-Public Use
  Company Number: 2011HGS-002815

PATIENT
  Age: 45 Year
  Sex: Female
  Weight: 75.7507 kg

DRUGS (4)
  1. WARFARIN SODIUM [Concomitant]
  2. BENLYSTA [Suspect]
     Indication: SYSTEMIC LUPUS ERYTHEMATOSUS
     Dosage: 1 IN 28 D, INTRAVENOUS DRIP
     Route: 041
     Dates: start: 20111007, end: 20111108
  3. PROTONIX [Concomitant]
  4. EFFEXOR [Concomitant]

REACTIONS (7)
  - DEPRESSION [None]
  - DYSPNOEA [None]
  - BLOOD PRESSURE DECREASED [None]
  - NAUSEA [None]
  - CHEST DISCOMFORT [None]
  - TINNITUS [None]
  - DIZZINESS [None]
